FAERS Safety Report 6272286-2 (Version None)
Quarter: 2009Q3

REPORT INFORMATION
  Report Type: 
  Country: None (occurrence: None)
  Receive Date: 20090717
  Receipt Date: 20090708
  Transmission Date: 20100115
  Serious: Yes (Hospitalization)
  Sender: FDA-Public Use
  Company Number: US-ELI_LILLY_AND_COMPANY-US200907001736

PATIENT
  Sex: Female
  Weight: 117.91 kg

DRUGS (9)
  1. BYETTA [Suspect]
     Indication: TYPE 2 DIABETES MELLITUS
     Dosage: 5 UG, 2/D
     Route: 058
     Dates: start: 20080901, end: 20081001
  2. BYETTA [Suspect]
     Dosage: 10 UG, 2/D
     Route: 058
     Dates: start: 20081001, end: 20081001
  3. BYETTA [Suspect]
     Dosage: 5 UG, 2/D
     Route: 058
     Dates: start: 20090621
  4. JANUVIA [Concomitant]
     Indication: TYPE 2 DIABETES MELLITUS
     Dosage: 10 MG, DAILY (1/D)
     Route: 048
  5. ACTOPLUS MET [Concomitant]
     Dates: start: 20081001, end: 20090621
  6. VERAPAMIL [Concomitant]
     Indication: BLOOD PRESSURE
     Dosage: 240 MG, DAILY (1/D)
     Route: 048
  7. LEVOXYL [Concomitant]
     Indication: HYPOTHYROIDISM
     Dosage: 25 MG, DAILY (1/D)
     Route: 048
  8. HYZAAR [Concomitant]
  9. METFORMIN [Concomitant]
     Dates: end: 20081001

REACTIONS (7)
  - ABDOMINAL PAIN [None]
  - DECREASED APPETITE [None]
  - DIARRHOEA [None]
  - GASTROOESOPHAGEAL REFLUX DISEASE [None]
  - HERNIA [None]
  - PYREXIA [None]
  - WEIGHT DECREASED [None]
